FAERS Safety Report 8603207-2 (Version None)
Quarter: 2012Q3

REPORT INFORMATION
  Report Type: 
  Country: None (occurrence: None)
  Receive Date: 20120817
  Receipt Date: 20120807
  Transmission Date: 20120928
  Serious: Yes (Other)
  Sender: FDA-Public Use
  Company Number: CA-ROCHE-1052220

PATIENT
  Sex: Female

DRUGS (3)
  1. LIPITOR [Concomitant]
  2. XOLAIR [Suspect]
     Indication: ASTHMA
     Route: 058
     Dates: start: 20080723
  3. XOLAIR [Suspect]
     Route: 058
     Dates: start: 20120807

REACTIONS (12)
  - FATIGUE [None]
  - BLOOD PRESSURE INCREASED [None]
  - NASOPHARYNGITIS [None]
  - COUGH [None]
  - PULMONARY CONGESTION [None]
  - BLOOD PRESSURE DECREASED [None]
  - BLOOD CHOLESTEROL INCREASED [None]
  - MYCOBACTERIUM AVIUM COMPLEX INFECTION [None]
  - WHEEZING [None]
  - BRONCHIECTASIS [None]
  - LUNG INFECTION [None]
  - DIZZINESS [None]
